FAERS Safety Report 6499154-5 (Version None)
Quarter: 2009Q4

REPORT INFORMATION
  Report Type: 
  Country: None (occurrence: None)
  Receive Date: 20091215
  Receipt Date: 20091209
  Transmission Date: 20100525
  Serious: Yes (Other)
  Sender: FDA-Public Use
  Company Number: US-ELI_LILLY_AND_COMPANY-US200906002741

PATIENT
  Sex: Male
  Weight: 131.52 kg

DRUGS (5)
  1. BYETTA [Suspect]
     Indication: TYPE 2 DIABETES MELLITUS
     Dosage: 5 UG, 2/D
     Route: 058
     Dates: start: 20071002, end: 20071102
  2. BYETTA [Suspect]
     Dosage: 10 UG, 2/D
     Route: 058
     Dates: start: 20071103, end: 20090804
  3. METFORMIN HCL [Concomitant]
     Indication: TYPE 2 DIABETES MELLITUS
     Dosage: 1000 MG, 2/D
  4. OMEPRAZOLE [Concomitant]
     Indication: HIATUS HERNIA
     Dosage: 20 MG, DAILY (1/D)
  5. ZOLPIDEM [Concomitant]

REACTIONS (12)
  - ASTHENIA [None]
  - BLOOD CHOLESTEROL INCREASED [None]
  - DEPRESSION [None]
  - DIVERTICULUM [None]
  - DYSPHAGIA [None]
  - DYSPNOEA [None]
  - HAEMATOCHEZIA [None]
  - HEART RATE INCREASED [None]
  - HYPERTENSION [None]
  - PANCREATIC DISORDER [None]
  - PROSTATOMEGALY [None]
  - SWELLING FACE [None]
